FAERS Safety Report 6283900-X (Version None)
Quarter: 2009Q3

REPORT INFORMATION
  Report Type: 
  Country: None (occurrence: None)
  Receive Date: 20090722
  Receipt Date: 20090722
  Transmission Date: 20100115
  Serious: Yes (Other)
  Sender: FDA-Public Use
  Company Number: None

PATIENT
  Age: 11 Year
  Sex: Male
  Weight: 41 kg

DRUGS (2)
  1. CEFEPIME [Suspect]
     Dosage: 2000MG Q12H IV
     Route: 042
     Dates: start: 20090504, end: 20090524
  2. CEFEPIME [Suspect]
     Dosage: 2000MG Q12H IV
     Route: 042
     Dates: start: 20090624, end: 20090716

REACTIONS (2)
  - NEUTROPHIL COUNT DECREASED [None]
  - WHITE BLOOD CELL COUNT DECREASED [None]
